FAERS Safety Report 22235673 (Version 7)
Quarter: 2024Q4

REPORT INFORMATION
  Report Type: Spontaneous
  Country: CA (occurrence: CA)
  Receive Date: 20230420
  Receipt Date: 20241008
  Transmission Date: 20250115
  Serious: Yes (Hospitalization, Other)
  Sender: ASCEND
  Company Number: CA-Ascend Therapeutics US, LLC-2140609

PATIENT
  Age: 75 Year
  Sex: Female

DRUGS (35)
  1. ESTROGEL [Suspect]
     Active Substance: ESTRADIOL
     Indication: Menopausal symptoms
  2. ESTROGEL [Suspect]
     Active Substance: ESTRADIOL
  3. ESTRADIOL [Suspect]
     Active Substance: ESTRADIOL
  4. IPRATROPIUM [Suspect]
     Active Substance: IPRATROPIUM
  5. AZOPT [Suspect]
     Active Substance: BRINZOLAMIDE
  6. PYRIDOXINE HYDROCHLORIDE [Suspect]
     Active Substance: PYRIDOXINE HYDROCHLORIDE
  7. GABAPENTIN [Suspect]
     Active Substance: GABAPENTIN
  8. DICLOFENAC SODIUM [Suspect]
     Active Substance: DICLOFENAC SODIUM
  9. BRINZOLAMIDE\TIMOLOL MALEATE [Suspect]
     Active Substance: BRINZOLAMIDE\TIMOLOL MALEATE
  10. IPRATROPIUM [Suspect]
     Active Substance: IPRATROPIUM
  11. VITAMIN D3 [Suspect]
     Active Substance: CHOLECALCIFEROL
  12. VITAMINS [Suspect]
     Active Substance: VITAMINS
  13. BRINZOLAMIDE [Suspect]
     Active Substance: BRINZOLAMIDE
  14. LATANOPROST [Suspect]
     Active Substance: LATANOPROST
  15. AZOPT [Suspect]
     Active Substance: BRINZOLAMIDE
  16. ESTRADIOL [Suspect]
     Active Substance: ESTRADIOL
  17. COLECALCIFEROL(COLECALCIFEROL) [Concomitant]
  18. VITAMINS NOS [Concomitant]
     Active Substance: VITAMINS
  19. VITAMINS NOS [Suspect]
     Active Substance: VITAMINS
  20. ZOPICLONE [Suspect]
     Active Substance: ZOPICLONE
  21. VITAMIN D3 [Suspect]
     Active Substance: CHOLECALCIFEROL
  22. VITAMIN B6 [Suspect]
     Active Substance: PYRIDOXINE HYDROCHLORIDE
  23. TELMISARTAN [Suspect]
     Active Substance: TELMISARTAN
  24. BRINZOLAMIDE [Suspect]
     Active Substance: BRINZOLAMIDE
  25. PREGABALIN [Suspect]
     Active Substance: PREGABALIN
  26. NAPROXEN [Suspect]
     Active Substance: NAPROXEN
  27. LATANOPROST [Suspect]
     Active Substance: LATANOPROST
  28. IPRATROPIUM [Suspect]
     Active Substance: IPRATROPIUM
  29. IBUPROFEN [Suspect]
     Active Substance: IBUPROFEN
  30. DICLOFENAC DIETHYLAMINE [Suspect]
     Active Substance: DICLOFENAC DIETHYLAMINE
  31. CLONAZEPAM [Suspect]
     Active Substance: CLONAZEPAM
  32. CALCIUM CARBONATE [Suspect]
     Active Substance: CALCIUM CARBONATE
  33. ATORVASTATIN CALCIUM [Suspect]
     Active Substance: ATORVASTATIN CALCIUM
  34. AMOXICILLIN TRIHYDRATE [Suspect]
     Active Substance: AMOXICILLIN
  35. ACETAMINOPHEN [Suspect]
     Active Substance: ACETAMINOPHEN

REACTIONS (3)
  - Toxic epidermal necrolysis [Recovered/Resolved]
  - Off label use [Recovered/Resolved]
  - Haemoglobin decreased [Recovered/Resolved]
